FAERS Safety Report 6129902-5 (Version None)
Quarter: 2009Q1

REPORT INFORMATION
  Report Type: 
  Country: None (occurrence: None)
  Receive Date: 20090323
  Receipt Date: 20090323
  Transmission Date: 20090719
  Serious: Yes (Hospitalization, Other)
  Sender: FDA-Public Use
  Company Number: None

PATIENT
  Age: 47 Year
  Sex: Male
  Weight: 99.7913 kg

DRUGS (1)
  1. LEVAQUIN [Suspect]
     Indication: BRONCHITIS
     Dosage: 750 MG - 30 ML -] 9120 ML] [90 1 EVERY 24 HOURS IV DRIP
     Route: 041
     Dates: start: 20090318, end: 20090320

REACTIONS (18)
  - ANGER [None]
  - ANXIETY [None]
  - ARTHRALGIA [None]
  - BONE PAIN [None]
  - CONFUSIONAL STATE [None]
  - HALLUCINATIONS, MIXED [None]
  - HYPERACUSIS [None]
  - HYPOAESTHESIA [None]
  - IRRITABILITY [None]
  - MIGRAINE [None]
  - MYALGIA [None]
  - NAUSEA [None]
  - PAIN [None]
  - PARAESTHESIA [None]
  - PHOTOPHOBIA [None]
  - ROTATOR CUFF SYNDROME [None]
  - TINNITUS [None]
  - TREMOR [None]
